FAERS Safety Report 19992540 (Version 1)
Quarter: 2021Q4

REPORT INFORMATION
  Report Type: Spontaneous
  Country: US (occurrence: US)
  Receive Date: 20211026
  Receipt Date: 20211026
  Transmission Date: 20220304
  Serious: No
  Sender: FDA-Public Use
  Company Number: US-TOLMAR, INC.-21US030074

PATIENT
  Age: 34 Year
  Sex: Male

DRUGS (1)
  1. KETOCONAZOLE [Suspect]
     Active Substance: KETOCONAZOLE
     Indication: Alopecia
     Dosage: UNK, 2/WEEK
     Dates: start: 202103, end: 202108

REACTIONS (2)
  - Dyspnoea [Recovered/Resolved]
  - Off label use [Unknown]
